FAERS Safety Report 24612719 (Version 1)
Quarter: 2024Q4

REPORT INFORMATION
  Report Type: Spontaneous
  Country: US (occurrence: None)
  Receive Date: 20241112
  Receipt Date: 20241112
  Transmission Date: 20250115
  Serious: Yes (Hospitalization)
  Sender: Public
  Company Number: None

PATIENT
  Age: 77 Year
  Sex: Male

DRUGS (1)
  1. CEFEPIME HYDROCHLORIDE [Suspect]
     Active Substance: CEFEPIME HYDROCHLORIDE
     Indication: Infection
     Dates: start: 20240910, end: 20240912

REACTIONS (7)
  - Encephalopathy [None]
  - Acute kidney injury [None]
  - Nephropathy toxic [None]
  - Hyponatraemia [None]
  - Intentional self-injury [None]
  - Abscess [None]
  - Haematoma [None]

NARRATIVE: CASE EVENT DATE: 20240912
